FAERS Safety Report 6633668-X (Version None)
Quarter: 2010Q1

REPORT INFORMATION
  Report Type: 
  Country: None (occurrence: None)
  Receive Date: 20100312
  Receipt Date: 20100308
  Transmission Date: 20100710
  Serious: Yes (Hospitalization)
  Sender: FDA-Public Use
  Company Number: BR-AMGEN-ICO247019

PATIENT
  Sex: Male

DRUGS (7)
  1. DARBEPOETIN ALFA [Suspect]
     Indication: RENAL FAILURE CHRONIC
     Route: 058
     Dates: start: 20070213, end: 20070411
  2. CAPTOPRIL [Suspect]
  3. AMLODIPINE [Concomitant]
  4. ATENOLOL [Concomitant]
  5. SIMVASTATIN [Concomitant]
  6. FUROSEMIDE [Concomitant]
  7. FERROUS SULFATE TAB [Concomitant]

REACTIONS (3)
  - HYPERTENSION [None]
  - RENAL FAILURE CHRONIC [None]
  - RETINAL DETACHMENT [None]
